FAERS Safety Report 18794414 (Version 5)
Quarter: 2022Q1

REPORT INFORMATION
  Report Type: Report from Study
  Country: GB (occurrence: GB)
  Receive Date: 20210127
  Receipt Date: 20220315
  Transmission Date: 20220423
  Serious: Yes (Hospitalization, Other)
  Sender: FDA-Public Use
  Company Number: GB-ROCHE-1836249

PATIENT
  Age: 33 Year
  Sex: Female

DRUGS (61)
  1. DOCETAXEL [Suspect]
     Active Substance: DOCETAXEL
     Indication: HER2 positive breast cancer
     Dosage: 130 MG, EVERY 3 WEEKS
     Route: 042
     Dates: start: 20160701
  2. DOCETAXEL [Suspect]
     Active Substance: DOCETAXEL
     Dosage: 110 MG, EVERY 3 WEEKS
     Route: 042
     Dates: start: 20160907, end: 20161021
  3. DOCETAXEL [Suspect]
     Active Substance: DOCETAXEL
     Dosage: 108 MG, EVERY 3 WEEKS
     Route: 042
     Dates: start: 20161111, end: 20161111
  4. PERTUZUMAB [Suspect]
     Active Substance: PERTUZUMAB
     Indication: HER2 positive breast cancer
     Dosage: 840 MG, 1X/DAY LOADING DOSE
     Route: 042
     Dates: start: 20160609, end: 20160609
  5. PERTUZUMAB [Suspect]
     Active Substance: PERTUZUMAB
     Dosage: 420 MG, EVERY 3 WEEKS
     Route: 042
     Dates: start: 20160701, end: 20171228
  6. TRASTUZUMAB [Suspect]
     Active Substance: TRASTUZUMAB
     Indication: HER2 positive breast cancer
     Dosage: 567 MG, 1X/DAY LOADING DOSE
     Route: 042
     Dates: start: 20160609, end: 20160609
  7. TRASTUZUMAB [Suspect]
     Active Substance: TRASTUZUMAB
     Dosage: 420 MG, EVERY 3 WEEKS
     Route: 042
     Dates: start: 20160701, end: 20160727
  8. TRASTUZUMAB [Suspect]
     Active Substance: TRASTUZUMAB
     Dosage: 420 MG, EVERY 3 WEEKS
     Route: 042
     Dates: start: 20160907, end: 20160926
  9. TRASTUZUMAB [Suspect]
     Active Substance: TRASTUZUMAB
     Dosage: 451.5 MG, EVERY 3 WEEKS
     Route: 042
     Dates: start: 20161021, end: 20161111
  10. TRASTUZUMAB [Suspect]
     Active Substance: TRASTUZUMAB
     Dosage: 451.5 MG, EVERY 3 WEEKS
     Route: 042
     Dates: start: 20161111, end: 20170519
  11. TRASTUZUMAB [Suspect]
     Active Substance: TRASTUZUMAB
     Dosage: 451.5 MG, EVERY 3 WEEKS
     Route: 042
     Dates: start: 20161202, end: 20170203
  12. TRASTUZUMAB [Suspect]
     Active Substance: TRASTUZUMAB
     Dosage: 420 MG, EVERY 3 WEEKS
     Route: 042
     Dates: start: 20170224, end: 20170407
  13. TRASTUZUMAB [Suspect]
     Active Substance: TRASTUZUMAB
     Dosage: 451.5 MG, EVERY 3 WEEKS
     Route: 042
     Dates: start: 20170428, end: 20170519
  14. TRASTUZUMAB [Suspect]
     Active Substance: TRASTUZUMAB
     Dosage: 472.5 MG, EVERY 3 WEEKS
     Route: 042
     Dates: start: 20170519, end: 20171228
  15. TRASTUZUMAB [Suspect]
     Active Substance: TRASTUZUMAB
     Dosage: 472.5 MG, EVERY 3 WEEKS
     Route: 042
     Dates: start: 20170612, end: 20171228
  16. ADO-TRASTUZUMAB EMTANSINE [Suspect]
     Active Substance: ADO-TRASTUZUMAB EMTANSINE
     Indication: HER2 positive breast cancer
     Dosage: 280 MG
     Route: 041
     Dates: start: 20180131, end: 20180131
  17. TAMOXIFEN [Suspect]
     Active Substance: TAMOXIFEN
     Indication: HER2 positive breast cancer
     Dosage: UNK
     Route: 065
     Dates: start: 20170623, end: 20171228
  18. TAMOXIFEN [Suspect]
     Active Substance: TAMOXIFEN
     Dosage: 20 MG, 1X/DAY
     Route: 065
     Dates: start: 20180213, end: 20180605
  19. FILGRASTIM [Concomitant]
     Active Substance: FILGRASTIM
     Dosage: 300 UG
     Route: 058
     Dates: start: 20160731, end: 20161112
  20. ENOXAPARIN [Concomitant]
     Active Substance: ENOXAPARIN
     Dosage: 40 MG, 1X/DAY
     Dates: start: 20160817, end: 20160914
  21. ENOXAPARIN [Concomitant]
     Active Substance: ENOXAPARIN
     Dosage: 40 MG, 1X/DAY
     Route: 058
     Dates: start: 20170616, end: 20170623
  22. ENOXAPARIN [Concomitant]
     Active Substance: ENOXAPARIN
     Dosage: 50 MG, AS NEEDED
     Dates: start: 20170617, end: 20170618
  23. ENOXAPARIN [Concomitant]
     Active Substance: ENOXAPARIN
     Dosage: 40 MG, 1X/DAY
     Dates: start: 20180105, end: 20180117
  24. ENOXAPARIN [Concomitant]
     Active Substance: ENOXAPARIN
     Dosage: 1200 MG, 1X/DAY
     Route: 058
     Dates: start: 20180212, end: 20180212
  25. ENOXAPARIN [Concomitant]
     Active Substance: ENOXAPARIN
     Dosage: 1 DF, DAILY
     Route: 058
     Dates: start: 20180214, end: 20180218
  26. ALBUTEROL [Concomitant]
     Active Substance: ALBUTEROL
     Dosage: 2.5 MG, 3X/DAY
     Route: 055
     Dates: start: 20160822, end: 20160908
  27. ALBUTEROL [Concomitant]
     Active Substance: ALBUTEROL
     Dosage: 2.5 MG, AS NEEDED
     Route: 055
     Dates: start: 20170616, end: 20170618
  28. MEROPENEM [Concomitant]
     Active Substance: MEROPENEM
     Dosage: 1 G, 3X/DAY
     Route: 042
     Dates: start: 20160809, end: 20160817
  29. CALCIUM CARBONATE\CHOLECALCIFEROL [Concomitant]
     Active Substance: CALCIUM CARBONATE\CHOLECALCIFEROL
     Dosage: UNK UNK, 2X/DAY
     Route: 048
     Dates: start: 20170621
  30. LEVETIRACETAM [Concomitant]
     Active Substance: LEVETIRACETAM
     Dosage: 1 G
     Route: 042
     Dates: start: 20170616, end: 20170616
  31. LEVETIRACETAM [Concomitant]
     Active Substance: LEVETIRACETAM
     Dosage: 1 G, 1X/DAY
     Dates: start: 20170617
  32. LEVETIRACETAM [Concomitant]
     Active Substance: LEVETIRACETAM
     Dosage: 1 G, 1X/DAY
     Route: 058
     Dates: start: 20170617
  33. RANITIDINE [Concomitant]
     Active Substance: RANITIDINE
     Dosage: 50 MG, AS NEEDED
     Route: 048
     Dates: start: 20170617, end: 20170618
  34. COTRIMOXAZOLE [Concomitant]
     Active Substance: SULFAMETHOXAZOLE\TRIMETHOPRIM
     Dosage: 483 MG
     Route: 048
     Dates: start: 20180131, end: 20180131
  35. METOCLOPRAMIDE [Concomitant]
     Active Substance: METOCLOPRAMIDE
     Dosage: 10 MG, AS NEEDED
     Route: 048
     Dates: start: 20160610, end: 20161111
  36. METOCLOPRAMIDE [Concomitant]
     Active Substance: METOCLOPRAMIDE
     Dosage: 10 MG
     Route: 048
     Dates: start: 20180131
  37. AMOXICILLIN [Concomitant]
     Active Substance: AMOXICILLIN
     Dosage: UNK
     Route: 048
     Dates: start: 201712, end: 201712
  38. CHLORPHENIRAMINE MALEATE [Concomitant]
     Active Substance: CHLORPHENIRAMINE MALEATE
     Dosage: 10 MG
     Route: 042
     Dates: start: 20160907, end: 20160907
  39. CHLORPHENIRAMINE MALEATE [Concomitant]
     Active Substance: CHLORPHENIRAMINE MALEATE
     Dosage: 10 MG
     Route: 042
     Dates: start: 20160928, end: 20170724
  40. HYDROCORTISONE [Concomitant]
     Active Substance: HYDROCORTISONE
     Dosage: 100 MG
     Route: 042
     Dates: start: 20160907, end: 20160907
  41. ORAMORPH SR SUSTAINED RELEASE [Concomitant]
     Active Substance: MORPHINE SULFATE
     Dosage: 2.5 MG, AS NEEDED
     Route: 048
     Dates: start: 20160828
  42. SULFAMETHOXAZOLE\TRIMETHOPRIM [Concomitant]
     Active Substance: SULFAMETHOXAZOLE\TRIMETHOPRIM
     Dosage: 2112 MG, 3X/DAY
     Route: 042
     Dates: start: 20160811, end: 20160816
  43. CODEINE PHOSPHATE [Concomitant]
     Active Substance: CODEINE PHOSPHATE
     Dosage: 10 ML, AS NEEDED
     Route: 048
     Dates: start: 20170619, end: 20170619
  44. LEVOMEPROMAZINE [Concomitant]
     Active Substance: LEVOMEPROMAZINE
     Dosage: 6.25 MG
     Route: 058
     Dates: start: 20170617, end: 20170617
  45. LEVOMEPROMAZINE [Concomitant]
     Active Substance: LEVOMEPROMAZINE
     Dosage: UNK
     Dates: start: 20170908, end: 20170925
  46. SODIUM CHLORIDE [Concomitant]
     Active Substance: SODIUM CHLORIDE
     Dosage: 5 ML, CYCLIC( EVERY 4 WEEKS)
     Route: 055
     Dates: start: 20170616, end: 20170623
  47. ZOPICLONE [Concomitant]
     Active Substance: ZOPICLONE
     Dosage: 3.75 MG, AS NEEDED
     Route: 048
     Dates: start: 20170618, end: 20170619
  48. METOCLOPRAMIDE [Concomitant]
     Active Substance: METOCLOPRAMIDE
     Dosage: UNK
     Route: 042
     Dates: start: 20180106, end: 20180106
  49. ENOXAPARIN SODIUM [Concomitant]
     Active Substance: ENOXAPARIN SODIUM
     Dosage: 40 MG, 1X/DAY
     Route: 058
     Dates: start: 20160723, end: 20160723
  50. ENOXAPARIN SODIUM [Concomitant]
     Active Substance: ENOXAPARIN SODIUM
     Dosage: 110 MG, 1X/DAY
     Route: 058
     Dates: start: 20160825, end: 20160914
  51. LEVETIRACETAM [Concomitant]
     Active Substance: LEVETIRACETAM
     Dosage: 500 MG, 2X/DAY
     Route: 048
     Dates: start: 20170617
  52. SENNA [Concomitant]
     Active Substance: SENNA LEAF\SENNOSIDES\SENNOSIDES A AND B
     Dosage: 15 MG, 1X/DAY
     Route: 048
     Dates: start: 20160722, end: 20161011
  53. DOCUSATE [Concomitant]
     Active Substance: DOCUSATE
     Dosage: 20 MG, 1X/DAY
     Route: 048
     Dates: start: 20160722, end: 20160724
  54. DEXAMETHASONE [Concomitant]
     Active Substance: DEXAMETHASONE
     Dosage: UNK, 1X/DAY
     Route: 048
     Dates: start: 20160805, end: 201609
  55. DEXAMETHASONE [Concomitant]
     Active Substance: DEXAMETHASONE
     Dosage: 4 MG, 2X/DAY
     Route: 042
     Dates: start: 20160722, end: 20160723
  56. DEXAMETHASONE [Concomitant]
     Active Substance: DEXAMETHASONE
     Dosage: 8 MG, 1X/DAY
     Route: 042
     Dates: start: 20160803, end: 20160805
  57. DEXAMETHASONE [Concomitant]
     Active Substance: DEXAMETHASONE
     Dosage: 2 MG, 1X/DAY
     Route: 042
     Dates: start: 20180111
  58. LANSOPRAZOLE [Concomitant]
     Active Substance: LANSOPRAZOLE
     Dosage: 30 MG, 1X/DAY
     Route: 048
     Dates: start: 20160722, end: 20160724
  59. LANSOPRAZOLE [Concomitant]
     Active Substance: LANSOPRAZOLE
     Dosage: 30 MG, 1X/DAY
     Route: 048
     Dates: start: 20160809
  60. RAMIPRIL [Concomitant]
     Active Substance: RAMIPRIL
     Dosage: 2.3 MG, 1X/DAY
     Route: 048
     Dates: start: 20160722, end: 20161011
  61. DIFLAM [Concomitant]
     Dosage: UNK, 3X/DAY
     Route: 048
     Dates: start: 20160722, end: 20160723

REACTIONS (18)
  - Dyspnoea [Not Recovered/Not Resolved]
  - Pneumonia [Recovered/Resolved]
  - Seizure [Recovering/Resolving]
  - Back pain [Recovering/Resolving]
  - Chest pain [Recovered/Resolved]
  - Nausea [Recovered/Resolved]
  - Vomiting [Recovered/Resolved]
  - Hyponatraemia [Recovered/Resolved]
  - Diarrhoea [Recovered/Resolved]
  - Lower respiratory tract infection [Recovered/Resolved]
  - Vomiting [Recovered/Resolved]
  - Lower respiratory tract infection [Recovered/Resolved]
  - Lower respiratory tract infection [Recovered/Resolved]
  - Pain in jaw [Recovered/Resolved]
  - Vomiting [Not Recovered/Not Resolved]
  - Nausea [Recovered/Resolved]
  - Excessive eye blinking [Recovered/Resolved]
  - Nausea [Recovered/Resolved]

NARRATIVE: CASE EVENT DATE: 20160722
